FAERS Safety Report 9701711 (Version 1)
Quarter: 2013Q4

REPORT INFORMATION
  Report Type: Spontaneous
  Country: US (occurrence: US)
  Receive Date: 20131119
  Receipt Date: 20131119
  Transmission Date: 20140711
  Serious: Yes (Other)
  Sender: FDA-Public Use
  Company Number: US-SAVIENT-2012S1000100

PATIENT
  Age: 55 Year
  Sex: Female
  Weight: 60.78 kg

DRUGS (6)
  1. KRYSTEXXA [Suspect]
     Indication: GOUT
     Route: 042
     Dates: start: 20121003, end: 20121003
  2. DIPHENHYDRAMINE [Concomitant]
     Indication: ALLERGY PROPHYLAXIS
     Dates: start: 2012, end: 2012
  3. DIPHENHYDRAMINE [Concomitant]
     Indication: ALLERGY PROPHYLAXIS
     Dates: start: 20121003, end: 20121003
  4. SOLU-MEDROL [Concomitant]
     Indication: ALLERGY PROPHYLAXIS
     Route: 042
     Dates: start: 20121003, end: 20121003
  5. ATENOLOL [Concomitant]
     Indication: PRODUCT USED FOR UNKNOWN INDICATION
  6. COLCRYS [Concomitant]
     Indication: PRODUCT USED FOR UNKNOWN INDICATION

REACTIONS (1)
  - Anaphylactic reaction [Unknown]
